FAERS Safety Report 8997939 (Version 1)
Quarter: 2013Q1

REPORT INFORMATION
  Report Type: Spontaneous
  Country: US (occurrence: US)
  Receive Date: 20130104
  Receipt Date: 20130104
  Transmission Date: 20140127
  Serious: Yes (Life-Threatening, Other)
  Sender: FDA-Public Use
  Company Number: US-JNJFOC-20121213177

PATIENT
  Sex: 0

DRUGS (2)
  1. ACETAMINOPHEN [Suspect]
     Route: 065
  2. ACETAMINOPHEN [Suspect]
     Indication: PRODUCT USED FOR UNKNOWN INDICATION
     Route: 065

REACTIONS (3)
  - Coma [Unknown]
  - Acute hepatic failure [Unknown]
  - Overdose [Unknown]
